FAERS Safety Report 7406867-7 (Version None)
Quarter: 2011Q2

REPORT INFORMATION
  Report Type: 
  Country: None (occurrence: None)
  Receive Date: 20110411
  Receipt Date: 20110206
  Transmission Date: 20111010
  Serious: No
  Sender: FDA-Public Use
  Company Number: US-BAUSCH-2011BL000777

PATIENT
  Age: 46 Year
  Sex: Male

DRUGS (4)
  1. ZIRGAN [Suspect]
     Indication: CONJUNCTIVITIS VIRAL
     Route: 047
     Dates: start: 20110201, end: 20110201
  2. ZIRGAN [Suspect]
     Route: 047
     Dates: start: 20110202, end: 20110204
  3. ZIRGAN [Suspect]
     Route: 047
     Dates: start: 20110202, end: 20110204
  4. ZIRGAN [Suspect]
     Indication: OFF LABEL USE
     Route: 047
     Dates: start: 20110201, end: 20110201

REACTIONS (1)
  - EYE SWELLING [None]
